FAERS Safety Report 9178078 (Version 1)
Quarter: 2013Q1

REPORT INFORMATION
  Report Type: Spontaneous
  Country: SG (occurrence: SG)
  Receive Date: 20130321
  Receipt Date: 20130321
  Transmission Date: 20140127
  Serious: Yes (Hospitalization, Other)
  Sender: FDA-Public Use
  Company Number: PHHY2013SG025514

PATIENT
  Sex: 0

DRUGS (3)
  1. ACETYLSALICYLIC ACID [Suspect]
     Dosage: 100 MG, UNK
  2. PREDNISOLONE [Interacting]
     Dosage: 1-100 MG/DAY
  3. ERYTHROMYCIN [Concomitant]

REACTIONS (4)
  - Dyspnoea [Unknown]
  - Anaemia [Unknown]
  - Duodenal ulcer [Unknown]
  - Drug interaction [Unknown]
